FAERS Safety Report 14108440 (Version 1)
Quarter: 2017Q4

REPORT INFORMATION
  Report Type: Spontaneous
  Country: GB (occurrence: GB)
  Receive Date: 20171019
  Receipt Date: 20171019
  Transmission Date: 20180321
  Serious: Yes (Other)
  Sender: FDA-Public Use
  Company Number: GB-TEVA-816085ACC

PATIENT
  Age: 70 Year
  Sex: Female
  Weight: 64 kg

DRUGS (27)
  1. MIRTAZAPINE. [Suspect]
     Active Substance: MIRTAZAPINE
     Dates: start: 20170929
  2. DOMPERIDONE [Concomitant]
     Active Substance: DOMPERIDONE
     Dosage: 3 DOSAGE FORMS DAILY;
     Dates: start: 20170926
  3. OMEPRAZOLE. [Concomitant]
     Active Substance: OMEPRAZOLE
     Dosage: 2 DOSAGE FORMS DAILY;
     Dates: start: 20161021
  4. ATORVASTATIN [Concomitant]
     Active Substance: ATORVASTATIN
     Dosage: 1 DOSAGE FORMS DAILY;
     Dates: start: 20161021
  5. LORATADINE. [Concomitant]
     Active Substance: LORATADINE
     Dosage: 1 DOSAGE FORMS DAILY;
     Dates: start: 20170906
  6. METFORMIN [Concomitant]
     Active Substance: METFORMIN HYDROCHLORIDE
     Dosage: 2 DOSAGE FORMS DAILY;
     Dates: start: 20161021
  7. MORPHINE SULFATE. [Concomitant]
     Active Substance: MORPHINE SULFATE
     Dosage: 5-10ML TO BE TAKEN 4 TIMES DAILY.
     Dates: start: 20160127
  8. AMITRIPTYLINE HYDROCHLORIDE. [Concomitant]
     Active Substance: AMITRIPTYLINE HYDROCHLORIDE
     Dosage: 1 DOSAGE FORMS DAILY;
     Dates: start: 20161021, end: 20170906
  9. CLOTRIMAZOLE. [Concomitant]
     Active Substance: CLOTRIMAZOLE
     Dosage: 2 DOSAGE FORMS DAILY;
     Dates: start: 20170712, end: 20170920
  10. FEXOFENADINE [Concomitant]
     Active Substance: FEXOFENADINE\FEXOFENADINE HYDROCHLORIDE
     Dosage: 1 DOSAGE FORMS DAILY;
     Dates: start: 20170510, end: 20170906
  11. LAXIDO [Concomitant]
     Active Substance: POLYETHYLENE GLYCOL 3350\POTASSIUM CHLORIDE\SODIUM BICARBONATE\SODIUM CHLORIDE
     Dosage: 2 DOSAGE FORMS DAILY;
     Dates: start: 20161021
  12. MENTHOL. [Concomitant]
     Active Substance: MENTHOL
     Indication: DRY SKIN
     Dates: start: 20170913
  13. PARACETAMOL [Concomitant]
     Active Substance: ACETAMINOPHEN
     Dosage: 8 DOSAGE FORMS DAILY;
     Dates: start: 20161021
  14. SODIUM DIHYDROGEN PHOSPHATE [Concomitant]
     Active Substance: SODIUM PHOSPHATE
     Dates: start: 20170920, end: 20170922
  15. ALENDRONIC ACID [Concomitant]
     Active Substance: ALENDRONIC ACID
     Dosage: SHOULD BE SWALLO...
     Dates: start: 20170130
  16. HUMALOG [Concomitant]
     Active Substance: INSULIN LISPRO
     Dosage: 32 IU (INTERNATIONAL UNIT) DAILY; 20 UNITS IN THE MORNING, 12 UNITS AT TEATIME.
     Dates: start: 20151015
  17. OCTENISAN [Concomitant]
     Dosage: 1 DOSAGE FORMS DAILY; WASH ENTIRE BODY AND HAIR/SCALP AS WASH/SHAMPOO FOR 5 DAYS.
     Dates: start: 20170905, end: 20170910
  18. NUTRITIONAL SUPPLEMENT [Concomitant]
     Active Substance: DIETARY SUPPLEMENT
     Dosage: 120 ML DAILY;
     Dates: start: 20170904
  19. HYDROCORTISONE. [Concomitant]
     Active Substance: HYDROCORTISONE
     Dosage: 2 DOSAGE FORMS DAILY; TO GROINS FOR 2 WEEKS.
     Dates: start: 20170921
  20. SENNA [Concomitant]
     Active Substance: SENNA LEAF\SENNOSIDES\SENNOSIDES A AND B
     Dosage: 2 DOSAGE FORMS DAILY; AT NIGHT.
     Dates: start: 20170906
  21. ADCAL [Concomitant]
     Active Substance: CALCIUM CARBONATE
     Dosage: 2 DOSAGE FORMS DAILY;
     Dates: start: 20170130
  22. BETAMETHASONE VALERATE. [Concomitant]
     Active Substance: BETAMETHASONE VALERATE
     Dosage: 2 DOSAGE FORMS DAILY;
     Dates: start: 20161221
  23. CONOTRANE [Concomitant]
     Dates: start: 20170616
  24. GLUCOSE [Concomitant]
     Active Substance: DEXTROSE
     Indication: HYPOGLYCAEMIA
     Dates: start: 20161021
  25. NEOMYCIN SULFATE. [Concomitant]
     Active Substance: NEOMYCIN SULFATE
     Dosage: 4 DOSAGE FORMS DAILY; INSIDE BOTH NOSTRILS.
     Dates: start: 20170905, end: 20170915
  26. SERTRALINE [Concomitant]
     Active Substance: SERTRALINE HYDROCHLORIDE
     Dosage: 1 DOSAGE FORMS DAILY; FOR THE NEXT 7 DAYS, THEN SWITCH...
     Dates: start: 20170201, end: 20170927
  27. ZOMORPH [Concomitant]
     Active Substance: MORPHINE SULFATE
     Dosage: 2 DOSAGE FORMS DAILY;
     Dates: start: 20160824

REACTIONS (2)
  - Personality change [Unknown]
  - Personality disorder [Recovering/Resolving]

NARRATIVE: CASE EVENT DATE: 20170929
